FAERS Safety Report 13840331 (Version 7)
Quarter: 2018Q1

REPORT INFORMATION
  Report Type: Report from Study
  Country: TR (occurrence: TR)
  Receive Date: 20170807
  Receipt Date: 20180131
  Transmission Date: 20180508
  Serious: Yes (Life-Threatening, Hospitalization)
  Sender: FDA-Public Use
  Company Number: TR-ROCHE-1908694

PATIENT
  Age: 63 Year
  Sex: Male
  Weight: 73.2 kg

DRUGS (20)
  1. ERYTHROCYTE TRANSFUSIONS [Concomitant]
     Indication: ANAEMIA
     Route: 042
     Dates: start: 20170321, end: 20170321
  2. ERYTHROCYTE TRANSFUSIONS [Concomitant]
     Route: 042
     Dates: start: 20170727, end: 20170727
  3. ERYTHROCYTE TRANSFUSIONS [Concomitant]
     Route: 042
     Dates: start: 20170908, end: 20170908
  4. MAGNESIE CALCINEE [Concomitant]
     Indication: CONSTIPATION
     Route: 048
     Dates: start: 20170328
  5. GERALGINE-K [Concomitant]
     Indication: COUGH
     Route: 048
     Dates: start: 20170606, end: 20170726
  6. PINGEL [Concomitant]
     Indication: MYOCARDIAL INFARCTION
     Route: 048
     Dates: start: 2016
  7. DEXIREN [Concomitant]
     Indication: PAIN
     Route: 048
     Dates: start: 201701
  8. B.T.ENEMA [Concomitant]
     Indication: CONSTIPATION
     Route: 065
     Dates: start: 20170328
  9. GEMCITABINE [Suspect]
     Active Substance: GEMCITABINE\GEMCITABINE HYDROCHLORIDE
     Indication: TRANSITIONAL CELL CARCINOMA
     Dosage: MOST RECENT DOSE OF GEMCITABINE: 07/MAR/2017?STARTING DOSE: 1000 MG/M2 (PER PROTOCOL)?MOST RECENT DO
     Route: 042
     Dates: start: 20170228
  10. CARBOPLATIN. [Suspect]
     Active Substance: CARBOPLATIN
     Indication: TRANSITIONAL CELL CARCINOMA
     Dosage: TO ACHIEVE AN AUC OF 4.5 MG/ML/MIN (PER PROTOCOL)?MOST RECENT DOSE OF CARBOPLATIN WAS 1900 MG ON 28/
     Route: 042
     Dates: start: 20170228
  11. ALOXI [Concomitant]
     Active Substance: PALONOSETRON HYDROCHLORIDE
     Indication: PREMEDICATION
     Route: 042
     Dates: start: 20170613, end: 20170613
  12. BELOC ZOK [Concomitant]
     Active Substance: METOPROLOL SUCCINATE
     Indication: MYOCARDIAL INFARCTION
     Route: 048
     Dates: start: 2015
  13. PULMICORT TURBUHALER [Concomitant]
     Active Substance: BUDESONIDE
     Indication: DYSPNOEA
     Route: 055
     Dates: start: 20170419
  14. NEXIUM [Concomitant]
     Active Substance: ESOMEPRAZOLE MAGNESIUM
     Indication: GASTRITIS
     Route: 048
     Dates: start: 20170511
  15. ATEZOLIZUMAB. [Suspect]
     Active Substance: ATEZOLIZUMAB
     Indication: TRANSITIONAL CELL CARCINOMA
     Dosage: MOST RECENT DOSE: 28/FEB/2017?MOST RECENT DOSE ON 21/AUG/2017
     Route: 042
     Dates: start: 20170228
  16. KYTRIL [Concomitant]
     Active Substance: GRANISETRON HYDROCHLORIDE
     Indication: NAUSEA
     Route: 048
     Dates: start: 20170315
  17. ERYTHROCYTE TRANSFUSIONS [Concomitant]
     Dosage: 2 UNITS
     Route: 042
     Dates: start: 20170606, end: 20170606
  18. MORFIA [Concomitant]
     Indication: PAIN
     Route: 048
     Dates: start: 201701
  19. BUSCOPAN [Concomitant]
     Active Substance: BUTYLSCOPOLAMINE BROMIDE
     Indication: GASTROINTESTINAL PAIN
     Route: 048
     Dates: start: 20170619
  20. ANTI-ASIDOZ [Concomitant]
     Indication: HYPOKALAEMIA
     Route: 048
     Dates: start: 20171024, end: 201711

REACTIONS (4)
  - Abdominal infection [Recovered/Resolved]
  - Intestinal obstruction [Recovered/Resolved]
  - Urinary tract infection [Recovering/Resolving]
  - Platelet count decreased [Recovered/Resolved]

NARRATIVE: CASE EVENT DATE: 20170315
